FAERS Safety Report 15463746 (Version 1)
Quarter: 2018Q4

REPORT INFORMATION
  Report Type: Spontaneous
  Country: BR (occurrence: BR)
  Receive Date: 20181004
  Receipt Date: 20181004
  Transmission Date: 20190204
  Serious: Yes (Life-Threatening, Hospitalization, Other)
  Sender: FDA-Public Use
  Company Number: BR-TORRENT-00004638

PATIENT
  Age: 30 Year
  Sex: Male
  Weight: 82 kg

DRUGS (5)
  1. LOREDON [Suspect]
     Active Substance: TRAZODONE HYDROCHLORIDE
     Indication: INSOMNIA
     Dosage: 2 TIMES DAILY (TOTALLY 100 MG)
     Route: 048
     Dates: start: 20180808, end: 20180920
  2. PHENERGAN [Concomitant]
     Active Substance: PROMETHAZINE HYDROCHLORIDE
     Indication: APNOEA
     Route: 048
     Dates: start: 2010
  3. NEOSINE [Concomitant]
     Active Substance: INOSINE PRANOBEX
     Indication: NERVOUS SYSTEM DISORDER
     Route: 048
     Dates: start: 2010
  4. ORAP [Concomitant]
     Active Substance: PIMOZIDE
     Indication: SCHIZOPHRENIA
     Dosage: ONE TWO TABLET DAILY (1 G)
     Route: 048
     Dates: start: 2010
  5. DIAZEPAM. [Concomitant]
     Active Substance: DIAZEPAM
     Indication: RELAXATION THERAPY
     Dosage: STARTED 8 MONTHS BEFORE THE CONTACT
     Route: 048

REACTIONS (8)
  - Urinary tract infection [Not Recovered/Not Resolved]
  - Hepatic infection [Not Recovered/Not Resolved]
  - Blood pressure decreased [Not Recovered/Not Resolved]
  - Off label use [Unknown]
  - Insomnia [Unknown]
  - Pyrexia [Recovering/Resolving]
  - Biliary tract infection [Not Recovered/Not Resolved]
  - Kidney infection [Not Recovered/Not Resolved]

NARRATIVE: CASE EVENT DATE: 20180808
